FAERS Safety Report 24047055 (Version 1)
Quarter: 2024Q3

REPORT INFORMATION
  Report Type: Spontaneous
  Country: US (occurrence: None)
  Receive Date: 20240702
  Receipt Date: 20240702
  Transmission Date: 20241017
  Serious: Yes (Other)
  Sender: Public
  Company Number: None

PATIENT
  Age: 77 Year
  Sex: Female
  Weight: 79.2 kg

DRUGS (5)
  1. CARBOCAINE [Suspect]
     Active Substance: MEPIVACAINE HYDROCHLORIDE
     Indication: Pain
     Dosage: OTHER FREQUENCY : INJECTION;?OTHER ROUTE : INJECTED INTO GUMS BY ENDODONTIST;?
     Route: 050
  2. MARCAINE [Suspect]
     Active Substance: BUPIVACAINE HYDROCHLORIDE
  3. EPINEPHRINE [Suspect]
     Active Substance: EPINEPHRINE
  4. VITAMIN D [Concomitant]
     Active Substance: VITAMIN D NOS
  5. Premier Protein Shake [Concomitant]

REACTIONS (3)
  - Gait disturbance [None]
  - Aphasia [None]
  - Adverse drug reaction [None]

NARRATIVE: CASE EVENT DATE: 20240627
